FAERS Safety Report 9688545 (Version 4)
Quarter: 2014Q3

REPORT INFORMATION
  Report Type: Spontaneous
  Country: GB (occurrence: GB)
  Receive Date: 20131114
  Receipt Date: 20140704
  Transmission Date: 20150326
  Serious: Yes (Hospitalization, Other)
  Sender: FDA-Public Use
  Company Number: GB-JNJFOC-20131107720

PATIENT
  Sex: Male
  Weight: 42 kg

DRUGS (9)
  1. LYRINEL XL [Suspect]
     Active Substance: OXYBUTYNIN
     Indication: POLLAKIURIA
     Route: 048
  2. LYRINEL XL [Suspect]
     Active Substance: OXYBUTYNIN
     Indication: POLLAKIURIA
     Route: 048
     Dates: start: 20130704
  3. LYRINEL XL [Suspect]
     Active Substance: OXYBUTYNIN
     Indication: POLLAKIURIA
     Route: 048
     Dates: start: 201306
  4. LYRINEL XL [Suspect]
     Active Substance: OXYBUTYNIN
     Indication: BLADDER PAIN
     Route: 048
  5. LYRINEL XL [Suspect]
     Active Substance: OXYBUTYNIN
     Indication: BLADDER PAIN
     Route: 048
     Dates: start: 20130704
  6. LYRINEL XL [Suspect]
     Active Substance: OXYBUTYNIN
     Indication: BLADDER PAIN
     Route: 048
     Dates: start: 201306
  7. CODEINE [Suspect]
     Active Substance: CODEINE
     Indication: PROCEDURAL PAIN
     Dosage: 25 MG/5 ML SOLUTION
     Route: 065
  8. LYRINEL XL [Suspect]
     Active Substance: OXYBUTYNIN
     Indication: POLLAKIURIA
     Route: 048
  9. LYRINEL XL [Suspect]
     Active Substance: OXYBUTYNIN
     Indication: BLADDER PAIN
     Route: 048

REACTIONS (5)
  - Syncope [Unknown]
  - Procedural pain [Unknown]
  - Urinary tract obstruction [Unknown]
  - Psychotic behaviour [Not Recovered/Not Resolved]
  - Blunted affect [Unknown]
